FAERS Safety Report 7935408-0 (Version None)
Quarter: 2011Q4

REPORT INFORMATION
  Report Type: 
  Country: None (occurrence: None)
  Receive Date: 20111122
  Receipt Date: 20111114
  Transmission Date: 20120403
  Serious: Yes (Other)
  Sender: FDA-Public Use
  Company Number: US-MERCK-1107USA02911

PATIENT
  Age: 76 Year
  Sex: Male
  Weight: 61 kg

DRUGS (5)
  1. LEVOTHROID [Concomitant]
     Indication: HYPOTHYROIDISM
     Route: 065
     Dates: start: 20030101, end: 20070101
  2. FOSAMAX [Suspect]
     Indication: OSTEOPOROSIS
     Route: 048
     Dates: start: 20040220, end: 20061122
  3. ALENDRONATE SODIUM [Suspect]
     Indication: OSTEOPOROSIS
     Route: 048
     Dates: start: 20090113, end: 20100805
  4. PREDNISONE [Concomitant]
     Route: 065
     Dates: start: 20020101, end: 20110201
  5. FOSAMAX PLUS D [Suspect]
     Indication: OSTEOPOROSIS
     Route: 048
     Dates: start: 20070214, end: 20081201

REACTIONS (39)
  - LIP AND/OR ORAL CAVITY CANCER [None]
  - ARRHYTHMIA SUPRAVENTRICULAR [None]
  - TINNITUS [None]
  - POSTERIOR CAPSULE RUPTURE [None]
  - APHTHOUS STOMATITIS [None]
  - SPINAL OSTEOARTHRITIS [None]
  - CYSTOID MACULAR OEDEMA [None]
  - DENTAL CARIES [None]
  - PNEUMONIA [None]
  - LEFT ATRIAL DILATATION [None]
  - ROAD TRAFFIC ACCIDENT [None]
  - RETINAL VEIN OCCLUSION [None]
  - AORTIC ARTERIOSCLEROSIS [None]
  - CATARACT [None]
  - INTERVERTEBRAL DISC DEGENERATION [None]
  - TRICUSPID VALVE INCOMPETENCE [None]
  - TOOTH FRACTURE [None]
  - OEDEMA PERIPHERAL [None]
  - OSTEONECROSIS OF JAW [None]
  - JOINT SWELLING [None]
  - CERVICOBRACHIAL SYNDROME [None]
  - PULPITIS DENTAL [None]
  - SQUAMOUS CELL CARCINOMA OF SKIN [None]
  - ADVERSE DRUG REACTION [None]
  - MUSCULOSKELETAL CHEST PAIN [None]
  - PULMONARY HYPERTENSION [None]
  - DYSPNOEA EXERTIONAL [None]
  - AORTIC VALVE STENOSIS [None]
  - EXOSTOSIS [None]
  - CHRONIC OBSTRUCTIVE PULMONARY DISEASE [None]
  - SPINAL COMPRESSION FRACTURE [None]
  - RASH [None]
  - PLEURAL EFFUSION [None]
  - MALAISE [None]
  - BLOOD THYROID STIMULATING HORMONE DECREASED [None]
  - CONJUNCTIVAL HAEMORRHAGE [None]
  - SLEEP APNOEA SYNDROME [None]
  - FALL [None]
  - MITRAL VALVE INCOMPETENCE [None]
